FAERS Safety Report 23343359 (Version 5)
Quarter: 2024Q2

REPORT INFORMATION
  Report Type: Report from Study
  Country: US (occurrence: US)
  Receive Date: 20231227
  Receipt Date: 20240625
  Transmission Date: 20240715
  Serious: No
  Sender: FDA-Public Use
  Company Number: US-AstraZeneca-CH-00533496A

PATIENT
  Sex: Male

DRUGS (3)
  1. ULTOMIRIS [Suspect]
     Active Substance: RAVULIZUMAB-CWVZ
     Indication: Myasthenia gravis
     Dosage: UNK
     Route: 041
     Dates: start: 20231214
  2. PREDNISONE [Concomitant]
     Active Substance: PREDNISONE
     Indication: Product used for unknown indication
     Dosage: 30 MILLIGRAM
     Route: 065
  3. PREDNISONE [Concomitant]
     Active Substance: PREDNISONE
     Dosage: 5 MILLIGRAM
     Route: 065

REACTIONS (11)
  - General physical health deterioration [Not Recovered/Not Resolved]
  - Diplopia [Not Recovered/Not Resolved]
  - Feeling abnormal [Unknown]
  - Gait disturbance [Recovering/Resolving]
  - Speech disorder [Unknown]
  - Intervertebral disc protrusion [Unknown]
  - Muscular weakness [Not Recovered/Not Resolved]
  - Asthenia [Unknown]
  - Dysphonia [Unknown]
  - Periorbital discomfort [Unknown]
  - Blood glucose increased [Unknown]

NARRATIVE: CASE EVENT DATE: 20231220
